FAERS Safety Report 21228967 (Version 1)
Quarter: 2022Q3

REPORT INFORMATION
  Report Type: Spontaneous
  Country: JP (occurrence: JP)
  Receive Date: 20220818
  Receipt Date: 20220818
  Transmission Date: 20221026
  Serious: Yes (Hospitalization)
  Sender: FDA-Public Use
  Company Number: JP-STRIDES ARCOLAB LIMITED-2022SP010411

PATIENT
  Age: 90 Year
  Sex: Female

DRUGS (9)
  1. AMLODIPINE [Suspect]
     Active Substance: AMLODIPINE BESYLATE
     Indication: Cardiac failure
     Dosage: 5 MILLIGRAM, QD
     Route: 065
  2. CARVEDILOL [Suspect]
     Active Substance: CARVEDILOL
     Indication: Cardiac failure
     Dosage: 10 MILLIGRAM, QD
     Route: 065
  3. TELMISARTAN [Suspect]
     Active Substance: TELMISARTAN
     Indication: Cardiac failure
     Dosage: 40 MILLIGRAM, QD
     Route: 065
  4. NICORANDIL [Suspect]
     Active Substance: NICORANDIL
     Indication: Cardiac failure
     Dosage: 7.5 MILLIGRAM, TID
     Route: 065
  5. CLOPIDOGREL BISULFATE [Suspect]
     Active Substance: CLOPIDOGREL BISULFATE
     Indication: Cardiac failure
     Dosage: 75 MILLIGRAM, QD
     Route: 065
  6. FEBUXOSTAT [Suspect]
     Active Substance: FEBUXOSTAT
     Indication: Cardiac failure
     Dosage: 20 MILLIGRAM, QD
     Route: 065
  7. LANSOPRAZOLE [Suspect]
     Active Substance: LANSOPRAZOLE
     Indication: Cardiac failure
     Dosage: 10 MILLIGRAM, QD
     Route: 065
  8. POLAPREZINC [Suspect]
     Active Substance: POLAPREZINC
     Indication: Cardiac failure
     Dosage: 75 MILLIGRAM, BID
     Route: 065
  9. REBAMIPIDE [Suspect]
     Active Substance: REBAMIPIDE
     Indication: Cardiac failure
     Dosage: 100 MILLIGRAM, TID
     Route: 065

REACTIONS (1)
  - BRASH syndrome [Unknown]
